FAERS Safety Report 15574959 (Version 1)
Quarter: 2018Q4

REPORT INFORMATION
  Report Type: Report from Study
  Country: None (occurrence: US)
  Receive Date: 20181101
  Receipt Date: 20181101
  Transmission Date: 20190205
  Serious: Yes (Other)
  Sender: FDA-Public Use
  Company Number: US-ABBVIE-18K-163-2502308-00

PATIENT
  Age: 50 Year
  Sex: Female
  Weight: 71.73 kg

DRUGS (3)
  1. HUMIRA [Suspect]
     Active Substance: ADALIMUMAB
     Route: 058
  2. CALCIUM [Concomitant]
     Active Substance: CALCIUM
     Indication: PRODUCT USED FOR UNKNOWN INDICATION
  3. HUMIRA [Suspect]
     Active Substance: ADALIMUMAB
     Indication: CROHN^S DISEASE
     Route: 058
     Dates: start: 201301

REACTIONS (5)
  - Dermal cyst [Not Recovered/Not Resolved]
  - Rash [Recovered/Resolved]
  - Dermal cyst [Recovered/Resolved]
  - Injury [Unknown]
  - Dermal cyst [Unknown]

NARRATIVE: CASE EVENT DATE: 201712
